FAERS Safety Report 9986881 (Version 1)
Quarter: 2014Q1

REPORT INFORMATION
  Report Type: Report from Study
  Country: MX (occurrence: MX)
  Receive Date: 20140307
  Receipt Date: 20140307
  Transmission Date: 20141002
  Serious: Yes (Other)
  Sender: FDA-Public Use
  Company Number: PHHY2014MX028273

PATIENT
  Age: 65 Year
  Sex: Male

DRUGS (5)
  1. EXFORGE [Suspect]
     Indication: HYPERTENSION
     Dosage: 1 DF(160/10MG), DAILY
     Route: 048
  2. EXFORGE [Suspect]
     Dosage: 0.5 DF(160/10MG), DAILY
     Route: 048
  3. EXFORGE [Suspect]
     Dosage: UNK UKN(160/5MG), ON OCCASIONS
  4. METOPROLOL [Concomitant]
     Indication: BLOOD PRESSURE ABNORMAL
     Dosage: 0.25 UKN, DAILY
  5. DIURETICS [Concomitant]
     Dosage: UNK UKN, UNK

REACTIONS (4)
  - Infarction [Not Recovered/Not Resolved]
  - Inflammation [Not Recovered/Not Resolved]
  - Cardiac disorder [Not Recovered/Not Resolved]
  - Wrong technique in drug usage process [Not Recovered/Not Resolved]
